FAERS Safety Report 9135950 (Version 1)
Quarter: 2013Q1

REPORT INFORMATION
  Report Type: Spontaneous
  Country: DK (occurrence: None)
  Receive Date: 20130219
  Receipt Date: 20130219
  Transmission Date: 20140127
  Serious: Yes (Death, Hospitalization)
  Sender: FDA-Public Use
  Company Number: 2013MA001073

PATIENT
  Age: 50 Year
  Sex: Male

DRUGS (16)
  1. DIAZEPAM TABLETS USP, 10 MG (PUREPAC) (DIAZEPAM) [Suspect]
     Route: 048
  2. CLOZARIL (CLOZAPINE) [Suspect]
     Indication: SCHIZOPHRENIA
     Route: 048
     Dates: start: 20110225
  3. LANSOPRAZOLE (LANZOPRAZOLE) [Suspect]
     Route: 048
  4. SALBUTAMOL (SALBUTAMOL) [Suspect]
     Dosage: 8 PUFFS
  5. TIOTROPIUM BROMIDE (TIOTROPIUM BROMIDE) [Suspect]
  6. SCOPOLAMINE [Suspect]
     Route: 048
  7. AMISULPRIDE [Concomitant]
  8. ACETYLSALICYLIC ACID [Concomitant]
  9. OMEPRAZOLE [Suspect]
  10. MIRTAZAPINE [Concomitant]
  11. ISOSORBIDE MONONITRAE [Concomitant]
  12. PREDNISOLONE [Concomitant]
  13. PROCYCLIDINE [Concomitant]
  14. CARBOCISTEINE [Concomitant]
  15. SIMVASTATIN [Concomitant]
  16. SENNA [Concomitant]

REACTIONS (2)
  - Chronic obstructive pulmonary disease [None]
  - Lower respiratory tract infection [None]
